FAERS Safety Report 6073727-6 (Version None)
Quarter: 2009Q1

REPORT INFORMATION
  Report Type: 
  Country: None (occurrence: None)
  Receive Date: 20090211
  Receipt Date: 20090206
  Transmission Date: 20090719
  Serious: No
  Sender: FDA-Public Use
  Company Number: US-JNJFOC-20090202281

PATIENT
  Sex: Female
  Weight: 58.51 kg

DRUGS (4)
  1. DURAGESIC-100 [Suspect]
     Indication: PAIN
     Route: 062
  2. FIORINAL [Concomitant]
     Indication: MIGRAINE
     Route: 048
  3. IMITREX [Concomitant]
     Indication: MIGRAINE
     Dosage: 0.06 MG /SOLUTION/ 0.68MG AS NEEDED
     Route: 030
  4. PAXIL [Concomitant]
     Indication: ANXIETY
     Route: 048

REACTIONS (3)
  - DRUG INEFFECTIVE [None]
  - INCORRECT DRUG ADMINISTRATION DURATION [None]
  - WRONG TECHNIQUE IN DRUG USAGE PROCESS [None]
